FAERS Safety Report 21539401 (Version 3)
Quarter: 2022Q4

REPORT INFORMATION
  Report Type: Spontaneous
  Country: US (occurrence: US)
  Receive Date: 20221102
  Receipt Date: 20221214
  Transmission Date: 20230113
  Serious: No
  Sender: FDA-Public Use
  Company Number: US-PFIZER INC-PV202200082152

PATIENT
  Age: 33 Year
  Sex: Male
  Weight: 77.11 kg

DRUGS (2)
  1. GENOTROPIN [Suspect]
     Active Substance: SOMATROPIN
     Indication: Prader-Willi syndrome
     Dosage: 0.8 MG, DAILY
  2. GENOTROPIN [Suspect]
     Active Substance: SOMATROPIN
     Dosage: 0.8 MG (USES 5 DAYS A WEEK)

REACTIONS (3)
  - Device mechanical issue [Unknown]
  - Poor quality device used [Unknown]
  - Device issue [Unknown]

NARRATIVE: CASE EVENT DATE: 20220701
